FAERS Safety Report 16105212 (Version 12)
Quarter: 2023Q2

REPORT INFORMATION
  Report Type: Report from Study
  Country: CO (occurrence: CO)
  Receive Date: 20190322
  Receipt Date: 20230524
  Transmission Date: 20230721
  Serious: Yes (Hospitalization, Other)
  Sender: FDA-Public Use
  Company Number: PHHY2016CO146341

PATIENT
  Age: 74 Year
  Sex: Female
  Weight: 62 kg

DRUGS (31)
  1. RUXOLITINIB [Suspect]
     Active Substance: RUXOLITINIB
     Indication: Myelofibrosis
     Dosage: 20 MG, Q12H
     Route: 048
     Dates: start: 20160922
  2. RUXOLITINIB [Suspect]
     Active Substance: RUXOLITINIB
     Dosage: 15 MG, Q12H
     Route: 048
  3. RUXOLITINIB [Suspect]
     Active Substance: RUXOLITINIB
     Dosage: 20 MG, Q12H (20 MG IN THE MORNING AND 20 MG IN THE AFTERNOON)
     Route: 048
  4. RUXOLITINIB [Suspect]
     Active Substance: RUXOLITINIB
     Dosage: 10 MG, Q12H
     Route: 048
  5. RUXOLITINIB [Suspect]
     Active Substance: RUXOLITINIB
     Dosage: 10 MG, BID (10 MG IN THE MORNING AND 10 MG IN THE AFTERNOON)
     Route: 048
  6. RUXOLITINIB [Suspect]
     Active Substance: RUXOLITINIB
     Dosage: 2 DF, QD (20 MG)
     Route: 048
     Dates: start: 201705
  7. RUXOLITINIB [Suspect]
     Active Substance: RUXOLITINIB
     Dosage: 20 MG, QD
     Route: 048
  8. RUXOLITINIB [Suspect]
     Active Substance: RUXOLITINIB
     Dosage: 10 MG, QD
     Route: 048
  9. RUXOLITINIB [Suspect]
     Active Substance: RUXOLITINIB
     Dosage: 20 MG, QD
     Route: 048
  10. RUXOLITINIB [Suspect]
     Active Substance: RUXOLITINIB
     Dosage: 30 MG, QD
     Route: 048
     Dates: start: 201609, end: 2020
  11. RUXOLITINIB [Suspect]
     Active Substance: RUXOLITINIB
     Dosage: 15 MG, QD
     Route: 048
  12. RUXOLITINIB [Suspect]
     Active Substance: RUXOLITINIB
     Dosage: 20 MG, QD
     Route: 048
  13. RUXOLITINIB [Suspect]
     Active Substance: RUXOLITINIB
     Dosage: 15 MG, Q12H
     Route: 048
     Dates: start: 201802
  14. RUXOLITINIB [Suspect]
     Active Substance: RUXOLITINIB
     Dosage: 20 MG, QD
     Route: 048
     Dates: start: 2020
  15. RUXOLITINIB [Suspect]
     Active Substance: RUXOLITINIB
     Dosage: 10/20 MG, EVERY 12 HOURS/DAILY
     Route: 048
     Dates: start: 2020
  16. RUXOLITINIB [Suspect]
     Active Substance: RUXOLITINIB
     Dosage: 10 MG, QD (20 MG DAILY)
     Route: 048
  17. RUXOLITINIB [Suspect]
     Active Substance: RUXOLITINIB
     Dosage: 15 MG, Q12H
     Route: 048
  18. RUXOLITINIB [Suspect]
     Active Substance: RUXOLITINIB
     Dosage: 10 MG, Q12H
     Route: 048
  19. RUXOLITINIB [Suspect]
     Active Substance: RUXOLITINIB
     Dosage: 20 MG, QD
     Route: 048
  20. RUXOLITINIB [Suspect]
     Active Substance: RUXOLITINIB
     Dosage: 20 MG, QD
     Route: 048
  21. RUXOLITINIB [Suspect]
     Active Substance: RUXOLITINIB
     Dosage: UNK (BY MOUTH)
     Route: 048
  22. ESOMEPRAZOLE [Suspect]
     Active Substance: ESOMEPRAZOLE
     Indication: Product used for unknown indication
     Dosage: UNK
     Route: 065
  23. AMOXICILLIN [Suspect]
     Active Substance: AMOXICILLIN
     Indication: Sinusitis
     Dosage: UNK (1000)
     Route: 065
     Dates: end: 20170118
  24. CHLORPROTHIXENE [Concomitant]
     Active Substance: CHLORPROTHIXENE
     Indication: Product used for unknown indication
     Dosage: UNK
     Route: 065
  25. ECOTRIN [Concomitant]
     Active Substance: ASPIRIN
     Indication: Product used for unknown indication
     Dosage: 81 MG, QOD
     Route: 048
  26. TRUXA [Concomitant]
     Indication: Product used for unknown indication
     Dosage: UNK
     Route: 065
  27. ATIVAN [Concomitant]
     Active Substance: LORAZEPAM
     Indication: Product used for unknown indication
     Dosage: 2 MG, QD
     Route: 065
  28. LEVOTHYROXINE SODIUM [Concomitant]
     Active Substance: LEVOTHYROXINE SODIUM
     Indication: Product used for unknown indication
     Dosage: 50 MG AND THREE TIMES A WEEK 75 MG
     Route: 065
  29. EZOLIUM [Concomitant]
     Indication: Product used for unknown indication
     Dosage: UNK
     Route: 065
  30. EUTHYROX [Concomitant]
     Active Substance: LEVOTHYROXINE SODIUM
     Indication: Thyroid disorder
     Dosage: 75 MG (MONDAY, WEDNESDAY AND FRIDAY)/50 MG (TUESDAY, THURSDAY. SATURDAY AND SUNDAY)
     Route: 065
  31. LORAZEPAM [Concomitant]
     Active Substance: LORAZEPAM
     Indication: Product used for unknown indication
     Dosage: 2 MG, QD
     Route: 048

REACTIONS (40)
  - Gastritis [Unknown]
  - Abdominal pain [Unknown]
  - Anaemia [Unknown]
  - Haemoglobin decreased [Unknown]
  - Herpes zoster [Recovering/Resolving]
  - Peripheral swelling [Unknown]
  - Swelling face [Unknown]
  - Platelet count increased [Unknown]
  - Lymphocyte count increased [Unknown]
  - White blood cell count increased [Unknown]
  - Blood lactate dehydrogenase increased [Unknown]
  - Helicobacter infection [Unknown]
  - Antiphospholipid syndrome [Unknown]
  - Myelofibrosis [Unknown]
  - Dyspnoea [Unknown]
  - Speech disorder [Unknown]
  - Sinusitis [Unknown]
  - Nausea [Unknown]
  - Pain in extremity [Unknown]
  - Asthenia [Unknown]
  - Fatigue [Unknown]
  - Arthralgia [Unknown]
  - Visual impairment [Unknown]
  - Dry eye [Unknown]
  - Gastric dilatation [Unknown]
  - Feeling abnormal [Unknown]
  - Fluid retention [Unknown]
  - Blood pressure decreased [Unknown]
  - Illness [Unknown]
  - Pain [Not Recovered/Not Resolved]
  - Somnolence [Unknown]
  - Influenza [Unknown]
  - Dysphonia [Unknown]
  - Discouragement [Unknown]
  - Dizziness [Unknown]
  - Weight increased [Unknown]
  - Platelet count decreased [Unknown]
  - Rash [Recovered/Resolved]
  - Product dispensing error [Unknown]
  - Inappropriate schedule of product administration [Unknown]

NARRATIVE: CASE EVENT DATE: 20161019
